FAERS Safety Report 21488106 (Version 2)
Quarter: 2023Q4

REPORT INFORMATION
  Report Type: Report from Study
  Country: US (occurrence: US)
  Receive Date: 20221020
  Receipt Date: 20231208
  Transmission Date: 20240110
  Serious: Yes (Other)
  Sender: FDA-Public Use
  Company Number: US-ACADIA PHARMACEUTICALS INC.-ACA-2022-PIM-003521

PATIENT
  Age: 88 Year
  Sex: Male

DRUGS (2)
  1. NUPLAZID [Suspect]
     Active Substance: PIMAVANSERIN TARTRATE
     Indication: Parkinson^s disease psychosis
     Dosage: 34 MILLIGRAM, QD
     Route: 048
     Dates: start: 20220603
  2. METOPROLOL [Concomitant]
     Active Substance: METOPROLOL

REACTIONS (4)
  - Atrial fibrillation [Not Recovered/Not Resolved]
  - Product dose omission issue [Recovered/Resolved]
  - Nonspecific reaction [Recovered/Resolved]
  - Nonspecific reaction [Not Recovered/Not Resolved]

NARRATIVE: CASE EVENT DATE: 20220921
